FAERS Safety Report 4644665-8 (Version None)
Quarter: 2005Q2

REPORT INFORMATION
  Report Type: 
  Country: None (occurrence: None)
  Receive Date: 20050422
  Receipt Date: 20050406
  Transmission Date: 20051028
  Serious: Yes (Death, Hospitalization, Other)
  Sender: FDA-Public Use
  Company Number: A-US2005-09247

PATIENT
  Age: 48 Year
  Sex: Male
  Weight: 67.1 kg

DRUGS (15)
  1. TRACLEER [Suspect]
     Indication: PULMONARY HYPERTENSION
     Dosage: SEE IMAGE
     Route: 048
  2. BUSPAR [Concomitant]
  3. CELEXA [Concomitant]
  4. CYTOXAN [Concomitant]
  5. COLACE (DOCUSATE SODIUM) [Concomitant]
  6. FLOLAN [Concomitant]
  7. LASIX [Concomitant]
  8. OXYCONTIN [Concomitant]
  9. PROTONIX [Concomitant]
  10. KCL (POTASSIUM CHLORIDE) [Concomitant]
  11. PREDNISONE [Concomitant]
  12. PHENERGAN [Concomitant]
  13. ALDACTONE [Concomitant]
  14. BACTRIM [Concomitant]
  15. ZAROXOLYN [Concomitant]

REACTIONS (1)
  - HEPATIC CIRRHOSIS [None]
